FAERS Safety Report 14702703 (Version 1)
Quarter: 2018Q2

REPORT INFORMATION
  Report Type: Other
  Country: FR (occurrence: FR)
  Receive Date: 20180402
  Receipt Date: 20180402
  Transmission Date: 20180711
  Serious: Yes (Life-Threatening)
  Sender: FDA-Public Use
  Company Number: FR-GLENMARK PHARMACEUTICALS-2018GMK033887

PATIENT

DRUGS (6)
  1. JANUMET [Suspect]
     Active Substance: METFORMIN HYDROCHLORIDE\SITAGLIPTIN PHOSPHATE
     Indication: DRUG ADMINISTRATION ERROR
     Dosage: 1 DF, QD (IN TOTAL)
     Route: 048
     Dates: start: 20180224, end: 20180224
  2. RILMENIDINE [Suspect]
     Active Substance: RILMENIDINE
     Indication: DRUG ADMINISTRATION ERROR
     Dosage: 2 MG, QD (IN TOTAL)
     Route: 048
     Dates: start: 20180224, end: 20180224
  3. TELMISARTAN. [Suspect]
     Active Substance: TELMISARTAN
     Indication: DRUG ADMINISTRATION ERROR
     Dosage: 80 MG, QD (IN TOTAL)
     Route: 048
     Dates: start: 20180224, end: 20180224
  4. GLIMEPIRIDE. [Suspect]
     Active Substance: GLIMEPIRIDE
     Indication: DRUG ADMINISTRATION ERROR
     Dosage: 8 MG, QD (IN TOTAL)
     Route: 048
     Dates: start: 20180224, end: 20180224
  5. FLECAINE L.P. 150 MG, G?LULE ? LIB?RATION PROLONG?E [Suspect]
     Active Substance: FLECAINIDE
     Indication: DRUG ADMINISTRATION ERROR
     Dosage: 150 MG, QD (IN TOTAL)
     Route: 048
     Dates: start: 20180224, end: 20180224
  6. CELIPROLOL [Suspect]
     Active Substance: CELIPROLOL
     Indication: DRUG ADMINISTRATION ERROR
     Dosage: 200 MG, QD (IN TOTAL)
     Route: 048
     Dates: start: 20180224, end: 20180224

REACTIONS (3)
  - Hypoglycaemic coma [Recovered/Resolved]
  - Bradycardia [Recovered/Resolved]
  - Atrioventricular block complete [Recovered/Resolved]

NARRATIVE: CASE EVENT DATE: 20180225
